FAERS Safety Report 21274403 (Version 4)
Quarter: 2022Q4

REPORT INFORMATION
  Report Type: Spontaneous
  Country: US (occurrence: US)
  Receive Date: 20220831
  Receipt Date: 20221013
  Transmission Date: 20230113
  Serious: Yes (Other)
  Sender: FDA-Public Use
  Company Number: US-PFIZER INC-PV202200031308

PATIENT
  Age: 69 Year
  Sex: Male
  Weight: 95.25 kg

DRUGS (4)
  1. RAPAMUNE [Suspect]
     Active Substance: SIROLIMUS
     Indication: Red blood cell count increased
     Dosage: 2 MG, DAILY (EXCEPT 3MG ON M,W,F)
     Route: 048
  2. RAPAMUNE [Suspect]
     Active Substance: SIROLIMUS
     Indication: Aplastic anaemia
     Dosage: 3 MG, CYCLIC (ON M,W,F)
     Route: 048
     Dates: start: 2019
  3. RAPAMUNE [Suspect]
     Active Substance: SIROLIMUS
     Dosage: 2 MG, CYCLIC (REST OF THE DAYS OF THE WEEK)
     Route: 048
     Dates: start: 2019
  4. RAPAMUNE [Suspect]
     Active Substance: SIROLIMUS
     Dosage: 0.5 MG (TAKE 6 TABLETS ON M,W,F; 4 TABLETS ON T,TH,SAT,SUN)
     Route: 048

REACTIONS (8)
  - Neck surgery [Recovering/Resolving]
  - Full blood count abnormal [Unknown]
  - Haemoglobin decreased [Unknown]
  - Back disorder [Unknown]
  - Intentional product misuse [Unknown]
  - Off label use [Unknown]
  - Off label use [Unknown]
  - Back pain [Unknown]

NARRATIVE: CASE EVENT DATE: 20190101
